FAERS Safety Report 7928620-8 (Version None)
Quarter: 2011Q4

REPORT INFORMATION
  Report Type: 
  Country: None (occurrence: None)
  Receive Date: 20111118
  Receipt Date: 20111116
  Transmission Date: 20120403
  Serious: Yes (Hospitalization)
  Sender: FDA-Public Use
  Company Number: DE-ABBOTT-11P-062-0722533-00

PATIENT
  Sex: Male
  Weight: 80 kg

DRUGS (2)
  1. HUMIRA [Suspect]
     Indication: CROHN'S DISEASE
     Dosage: 80MG LOADING DOSE WEEK 0
     Route: 058
     Dates: start: 20100614, end: 20110309
  2. HUMIRA [Suspect]
     Route: 058
     Dates: start: 20110907

REACTIONS (1)
  - INTESTINAL FISTULA [None]
